FAERS Safety Report 14611861 (Version 1)
Quarter: 2018Q1

REPORT INFORMATION
  Report Type: Spontaneous
  Country: US (occurrence: US)
  Receive Date: 20180307
  Receipt Date: 20180307
  Transmission Date: 20180509
  Serious: No
  Sender: FDA-Public Use
  Company Number: None

PATIENT
  Age: 83 Year
  Sex: Female

DRUGS (1)
  1. IMATINIB MES TAB 400MG [Suspect]
     Active Substance: IMATINIB
     Route: 048

REACTIONS (5)
  - Dizziness [None]
  - Trichorrhexis [None]
  - Cardiac murmur [None]
  - Hair texture abnormal [None]
  - Pneumonia [None]

NARRATIVE: CASE EVENT DATE: 20180306
